FAERS Safety Report 5632849-1 (Version None)
Quarter: 2008Q1

REPORT INFORMATION
  Report Type: 
  Country: None (occurrence: None)
  Receive Date: 20080221
  Receipt Date: 20080219
  Transmission Date: 20080703
  Serious: Yes (Other)
  Sender: FDA-Public Use
  Company Number: US-SP-2007-03037

PATIENT
  Age: 84 Year
  Sex: Male

DRUGS (1)
  1. THERACYS [Suspect]
     Indication: BLADDER CANCER
     Route: 043
     Dates: start: 20070328

REACTIONS (5)
  - BOVINE TUBERCULOSIS [None]
  - DRUG RESISTANCE [None]
  - HYPERSENSITIVITY [None]
  - PNEUMONIA [None]
  - SEPSIS SYNDROME [None]
